FAERS Safety Report 6044137-2 (Version None)
Quarter: 2009Q1

REPORT INFORMATION
  Report Type: 
  Country: None (occurrence: None)
  Receive Date: 20090120
  Receipt Date: 20090112
  Transmission Date: 20090719
  Serious: Yes (Disabling, Other)
  Sender: FDA-Public Use
  Company Number: US-ELI_LILLY_AND_COMPANY-US200901001724

PATIENT
  Sex: Female

DRUGS (8)
  1. STRATTERA [Suspect]
     Indication: PANIC ATTACK
     Dosage: 100 MG, DAILY (1/D)
     Route: 065
  2. STRATTERA [Suspect]
     Dosage: 40 MG, DAILY (1/D)
     Route: 065
  3. STRATTERA [Suspect]
     Dosage: 60 MG, DAILY (1/D)
     Route: 065
  4. SEROQUEL [Concomitant]
     Indication: SLEEP DISORDER
  5. LIBRIUM [Concomitant]
     Dosage: 10 MG, UNK
  6. LIPITOR [Concomitant]
     Dosage: 10 MG, UNK
  7. SYNTHROID [Concomitant]
  8. CLONAZEPAM [Concomitant]

REACTIONS (3)
  - CONCUSSION [None]
  - NAUSEA [None]
  - VISUAL ACUITY REDUCED [None]
